FAERS Safety Report 9924881 (Version 1)
Quarter: 2014Q1

REPORT INFORMATION
  Report Type: Spontaneous
  Country: PL (occurrence: None)
  Receive Date: 20140221
  Receipt Date: 20140221
  Transmission Date: 20141002
  Serious: Yes (Hospitalization)
  Sender: FDA-Public Use
  Company Number: 2014P1001360

PATIENT
  Age: 61 Year
  Sex: Female

DRUGS (3)
  1. ZOLPIDEM [Suspect]
     Indication: INSOMNIA
  2. SIBUTRAMINE [Suspect]
     Indication: OBESITY
  3. RISPERIDONE [Concomitant]

REACTIONS (3)
  - Amnesia [None]
  - Hallucination, auditory [None]
  - Abnormal behaviour [None]
